FAERS Safety Report 8200480-X (Version None)
Quarter: 2012Q1

REPORT INFORMATION
  Report Type: 
  Country: None (occurrence: None)
  Receive Date: 20120301
  Receipt Date: 20120215
  Transmission Date: 20120608
  Serious: Yes (Life-Threatening)
  Sender: FDA-Public Use
  Company Number: 003-054(1)

PATIENT
  Age: 71 Year
  Sex: Female

DRUGS (11)
  1. GLYBURIDE [Concomitant]
  2. BENADRYL [Concomitant]
  3. CROFAB [Suspect]
     Indication: SNAKE BITE
     Dates: start: 20110728, end: 20110728
  4. PROTONIX [Concomitant]
  5. PRADAXA [Concomitant]
  6. SINEMET [Concomitant]
  7. POTASSIUM CHLORIDE [Concomitant]
  8. SOLU-MEDROL [Concomitant]
  9. LASIX [Concomitant]
  10. SYNTHROID [Concomitant]
  11. ALTACE [Concomitant]

REACTIONS (4)
  - ENDOTRACHEAL INTUBATION COMPLICATION [None]
  - CARDIO-RESPIRATORY ARREST [None]
  - PNEUMOMEDIASTINUM [None]
  - ANAPHYLACTIC REACTION [None]
